FAERS Safety Report 15487520 (Version 1)
Quarter: 2018Q4

REPORT INFORMATION
  Report Type: Spontaneous
  Country: US (occurrence: US)
  Receive Date: 20181011
  Receipt Date: 20181011
  Transmission Date: 20190205
  Serious: No
  Sender: FDA-Public Use
  Company Number: US-BAUSCH-BL-2018-017502

PATIENT
  Age: 66 Year
  Sex: Female
  Weight: 76.73 kg

DRUGS (5)
  1. BESIVANCE [Suspect]
     Active Substance: BESIFLOXACIN
     Indication: PREOPERATIVE CARE
     Dosage: 1 DROP IN THE LEFT EYE THREE TIMES DAILY
     Route: 047
     Dates: start: 20180618
  2. BESIVANCE [Suspect]
     Active Substance: BESIFLOXACIN
     Indication: INTENTIONAL PRODUCT USE ISSUE
  3. COMBIGAN [Concomitant]
     Active Substance: BRIMONIDINE TARTRATE\TIMOLOL MALEATE
     Indication: PRODUCT USED FOR UNKNOWN INDICATION
  4. SYNTHROID [Concomitant]
     Active Substance: LEVOTHYROXINE SODIUM
     Indication: PRODUCT USED FOR UNKNOWN INDICATION
  5. TRAVATAN [Concomitant]
     Active Substance: TRAVOPROST
     Indication: PRODUCT USED FOR UNKNOWN INDICATION

REACTIONS (6)
  - Vision blurred [Not Recovered/Not Resolved]
  - Product physical issue [Unknown]
  - Eye discharge [Not Recovered/Not Resolved]
  - Wrong technique in product usage process [Unknown]
  - Poor quality product administered [Unknown]
  - Intentional product use issue [Not Recovered/Not Resolved]

NARRATIVE: CASE EVENT DATE: 201806
